FAERS Safety Report 6404315-7 (Version None)
Quarter: 2009Q4

REPORT INFORMATION
  Report Type: 
  Country: None (occurrence: None)
  Receive Date: 20091016
  Receipt Date: 20091007
  Transmission Date: 20100525
  Serious: Yes (Congenital Anomaly)
  Sender: FDA-Public Use
  Company Number: D0063222A

PATIENT

DRUGS (1)
  1. SEROXAT [Suspect]
     Indication: POSTPARTUM DEPRESSION
     Route: 065

REACTIONS (2)
  - DRUG EXPOSURE BEFORE PREGNANCY [None]
  - NEUROTRANSMITTER LEVEL ALTERED [None]
